FAERS Safety Report 9129405 (Version 2)
Quarter: 2013Q2

REPORT INFORMATION
  Report Type: Spontaneous
  Country: US (occurrence: US)
  Receive Date: 20130228
  Receipt Date: 20130410
  Transmission Date: 20140414
  Serious: No
  Sender: FDA-Public Use
  Company Number: US-PFIZER INC-2013071455

PATIENT
  Age: 77 Year
  Sex: Male
  Weight: 95.2 kg

DRUGS (1)
  1. DEPO-TESTOSTERONE [Suspect]
     Indication: BLOOD TESTOSTERONE DECREASED
     Dosage: 1 ML, MONTHLY

REACTIONS (2)
  - Product quality issue [Unknown]
  - Abdominal discomfort [Not Recovered/Not Resolved]
